FAERS Safety Report 14056778 (Version 2)
Quarter: 2018Q2

REPORT INFORMATION
  Report Type: Spontaneous
  Country: CH (occurrence: CH)
  Receive Date: 20171006
  Receipt Date: 20180508
  Transmission Date: 20180711
  Serious: Yes (Hospitalization, Other)
  Sender: FDA-Public Use
  Company Number: CH-PFIZER INC-2017426660

PATIENT
  Age: 59 Year
  Sex: Male

DRUGS (17)
  1. TOBREX [Suspect]
     Active Substance: TOBRAMYCIN
     Dosage: 1 GTT, 4X/DAY
     Route: 047
     Dates: start: 20170916, end: 20170917
  2. TRAMAL [Concomitant]
     Active Substance: TRAMADOL
     Indication: ANALGESIC THERAPY
     Dosage: 50 MG, AS NEEDED (4X PER DAY)
     Dates: start: 20170915
  3. LYRICA [Suspect]
     Active Substance: PREGABALIN
     Dosage: 50 MG, 3X/DAY
     Route: 048
     Dates: start: 201709
  4. COVERSUM [Concomitant]
     Active Substance: PERINDOPRIL
     Dosage: 5 MG, 1X/DAY
     Route: 048
  5. ATORVASTATIN [Concomitant]
     Active Substance: ATORVASTATIN
     Dosage: 40 MG, 1X/DAY
     Route: 048
  6. NEXIUM [Concomitant]
     Active Substance: ESOMEPRAZOLE MAGNESIUM
     Dosage: 40 MG, 1X/DAY
     Route: 048
  7. ACICLOVIR [Suspect]
     Active Substance: ACYCLOVIR
     Indication: HERPES ZOSTER
     Dosage: 850 MG, 3X/DAY (1X EVERY 8 HOURS OVER ONE HOURS IN 250ML NACL 0.9%)
     Route: 041
     Dates: start: 20170915, end: 20170922
  8. PREDNISONE. [Concomitant]
     Active Substance: PREDNISONE
     Dosage: 40 MG, DAILY
     Route: 048
  9. CHLORHEXIDINE [Concomitant]
     Active Substance: CHLORHEXIDINE
     Indication: INFECTION PROPHYLAXIS
     Dosage: UNK
     Dates: start: 20170915
  10. TOBREX [Suspect]
     Active Substance: TOBRAMYCIN
     Dosage: 1 GTT, 4X/DAY
     Route: 047
     Dates: start: 20170918
  11. BRIVEX [Concomitant]
     Active Substance: BRIVUDINE
     Dosage: UNK
     Dates: start: 20170922, end: 20170924
  12. LYRICA [Suspect]
     Active Substance: PREGABALIN
     Indication: ANALGESIC THERAPY
     Dosage: 50 MG, 3X/DAY
     Route: 048
     Dates: start: 20170915, end: 20170918
  13. BELOC ZOK [Concomitant]
     Active Substance: METOPROLOL SUCCINATE
     Dosage: 50 MG, 1X/DAY
     Route: 048
  14. TEMESTA (LORAZEPAM) [Concomitant]
     Active Substance: LORAZEPAM
     Dosage: 0.5 MG, 3X/DAY
     Route: 048
  15. PREDNISONE. [Concomitant]
     Active Substance: PREDNISONE
     Dosage: 80 MG, 1X/DAY
     Route: 048
     Dates: start: 201708
  16. PREDNISONE. [Concomitant]
     Active Substance: PREDNISONE
     Dosage: 60 MG, 1X/DAY
     Route: 048
  17. BACTRIM [Concomitant]
     Active Substance: SULFAMETHOXAZOLE\TRIMETHOPRIM
     Dosage: 160 MG, 3X PER WEEK
     Route: 048

REACTIONS (6)
  - Eyelid oedema [Recovered/Resolved]
  - Chest discomfort [Recovering/Resolving]
  - Condition aggravated [Recovered/Resolved]
  - Face oedema [Recovered/Resolved]
  - Punctate keratitis [Unknown]
  - Tachycardia [Recovering/Resolving]

NARRATIVE: CASE EVENT DATE: 20170915
